FAERS Safety Report 18239929 (Version 1)
Quarter: 2020Q3

REPORT INFORMATION
  Report Type: Spontaneous
  Country: US (occurrence: US)
  Receive Date: 20200908
  Receipt Date: 20200908
  Transmission Date: 20201103
  Serious: No
  Sender: FDA-Public Use
  Company Number: US-ITALFARMACO SPA-2089470

PATIENT
  Age: 68 Year
  Sex: Female

DRUGS (8)
  1. PANTOPRAZOLE SODIUM. [Concomitant]
     Active Substance: PANTOPRAZOLE SODIUM
  2. RADICAVA [Concomitant]
     Active Substance: EDARAVONE
  3. TIGLUTIK [Suspect]
     Active Substance: RILUZOLE
     Indication: AMYOTROPHIC LATERAL SCLEROSIS
     Dates: start: 20200730
  4. MOTRIN [Concomitant]
     Active Substance: IBUPROFEN
  5. MAGNESIUM OXIDE. [Concomitant]
     Active Substance: MAGNESIUM OXIDE
  6. CARVEDILOL. [Concomitant]
     Active Substance: CARVEDILOL
  7. TYLENOL [Concomitant]
     Active Substance: ACETAMINOPHEN
  8. MIRTAZAPINE. [Concomitant]
     Active Substance: MIRTAZAPINE

REACTIONS (1)
  - Abdominal discomfort [Unknown]
